FAERS Safety Report 9716286 (Version 1)
Quarter: 2013Q4

REPORT INFORMATION
  Report Type: Spontaneous
  Country: US (occurrence: US)
  Receive Date: 20131127
  Receipt Date: 20131127
  Transmission Date: 20140711
  Serious: No
  Sender: FDA-Public Use
  Company Number: US-B.I. PHARMACEUTICALS,INC./RIDGEFIELD-2013-BI-37777BP

PATIENT
  Age: 66 Year
  Sex: Female
  Weight: 74 kg

DRUGS (8)
  1. SPIRIVA [Suspect]
     Indication: CHRONIC OBSTRUCTIVE PULMONARY DISEASE
     Dosage: 18 MCG
     Route: 055
     Dates: start: 201311
  2. CARDIZEM CD [Concomitant]
     Indication: HYPERTENSION
     Dosage: 240 MG
     Route: 048
  3. ATENOLOL [Concomitant]
     Dosage: 50 MG
     Route: 048
  4. MICARDIS HCT [Concomitant]
     Indication: HYPERTENSION
     Dosage: 40 MG
     Route: 048
  5. CRESTOR [Concomitant]
     Indication: BLOOD CHOLESTEROL INCREASED
     Dosage: 20 MG
     Route: 048
  6. ASPIRIN [Concomitant]
     Dosage: 81 MG
     Route: 048
  7. VITAMINS [Concomitant]
     Route: 048
  8. VITAMIN B6 [Concomitant]
     Dosage: STRENGTH: 1TABLET EVERY OTHER DAY
     Route: 048

REACTIONS (1)
  - Dyspnoea [Recovered/Resolved]
